FAERS Safety Report 9218208 (Version 1)
Quarter: 2013Q2

REPORT INFORMATION
  Report Type: Spontaneous
  Country: US (occurrence: US)
  Receive Date: 20130408
  Receipt Date: 20130408
  Transmission Date: 20140414
  Serious: Yes (Death, Hospitalization)
  Sender: FDA-Public Use
  Company Number: US-UCBSA-082371

PATIENT
  Age: 21 Year
  Sex: Female

DRUGS (3)
  1. VIMPAT [Suspect]
     Indication: CONVULSION
     Route: 042
  2. KEPPRA [Suspect]
  3. POTASSIUM [Concomitant]

REACTIONS (3)
  - Ventricular fibrillation [Fatal]
  - Convulsion [Unknown]
  - Liver function test abnormal [Recovering/Resolving]
